FAERS Safety Report 17219045 (Version 3)
Quarter: 2020Q1

REPORT INFORMATION
  Report Type: Spontaneous
  Country: JP (occurrence: JP)
  Receive Date: 20191231
  Receipt Date: 20200225
  Transmission Date: 20200409
  Serious: Yes (Hospitalization)
  Sender: FDA-Public Use
  Company Number: JP-JNJFOC-20191247140

PATIENT
  Age: 84 Year
  Sex: Male

DRUGS (6)
  1. REMICADE [Suspect]
     Active Substance: INFLIXIMAB
     Indication: PSORIATIC ARTHROPATHY
     Dosage: ADMINISTRATION OF 4 V (THE EQUIVALENT AMOUNT IN MG WAS UNKNOWN), QD
     Route: 042
     Dates: start: 20191015, end: 20191029
  2. RHEUMATREX [Concomitant]
     Active Substance: METHOTREXATE SODIUM
     Indication: PSORIATIC ARTHROPATHY
     Dosage: 4 MILLIGRAM, QD
     Route: 048
  3. IRTRA [Concomitant]
     Active Substance: IRBESARTAN\TRICHLORMETHIAZIDE
     Indication: HYPERTENSION
     Route: 048
     Dates: end: 20191209
  4. REMICADE [Suspect]
     Active Substance: INFLIXIMAB
     Dosage: ADMINISTRATION OF 4 V (THE EQUIVALENT AMOUNT IN MG WAS UNKNOWN), QD
     Route: 042
     Dates: start: 20191126, end: 20191126
  5. EDIROL [Suspect]
     Active Substance: ELDECALCITOL
     Indication: OSTEOPOROSIS
     Route: 048
     Dates: end: 20191128
  6. TRAMAL [Concomitant]
     Active Substance: TRAMADOL
     Indication: PAIN
     Route: 048

REACTIONS (2)
  - Pneumocystis jirovecii pneumonia [Recovering/Resolving]
  - Rash [Recovered/Resolved]

NARRATIVE: CASE EVENT DATE: 20191128
